FAERS Safety Report 9982419 (Version 2)
Quarter: 2014Q1

REPORT INFORMATION
  Report Type: Report from Study
  Country: PR (occurrence: PR)
  Receive Date: 20140307
  Receipt Date: 20140307
  Transmission Date: 20141002
  Serious: No
  Sender: FDA-Public Use
  Company Number: PR-ABBVIE-13P-131-1084232-00

PATIENT
  Sex: Female
  Weight: 76.27 kg

DRUGS (14)
  1. HUMIRA [Suspect]
     Indication: RHEUMATOID ARTHRITIS
     Route: 058
     Dates: end: 201211
  2. ZANTAC [Concomitant]
     Indication: GASTRIC DISORDER
     Route: 048
  3. TRENTAL [Concomitant]
     Indication: CARDIOVASCULAR DISORDER
     Route: 048
  4. FIORICET [Concomitant]
     Indication: MIGRAINE
     Dosage: 1 EVERY 6 HRS
     Route: 048
  5. AZULFIDINE [Concomitant]
     Indication: RHEUMATOID ARTHRITIS
  6. NEURONTIN [Concomitant]
     Indication: NEUROPATHY PERIPHERAL
     Route: 048
  7. SINEMET [Concomitant]
     Indication: PARKINSON^S DISEASE
     Dosage: 10/100 MG
     Route: 048
  8. PLAQUENIL [Concomitant]
     Indication: PRODUCT USED FOR UNKNOWN INDICATION
     Route: 048
  9. PLAQUENIL [Concomitant]
     Route: 048
  10. FOLIC ACID [Concomitant]
     Indication: RHEUMATOID ARTHRITIS
     Route: 048
  11. METHOTREXATE [Concomitant]
     Indication: RHEUMATOID ARTHRITIS
     Route: 048
  12. CYMBALTA [Concomitant]
     Indication: PRODUCT USED FOR UNKNOWN INDICATION
     Route: 048
  13. KLONOPIN [Concomitant]
     Indication: INSOMNIA
     Route: 048
  14. ALENDRONATE [Concomitant]
     Indication: OSTEOPOROSIS
     Route: 048

REACTIONS (1)
  - Nasopharyngitis [Recovered/Resolved]
